FAERS Safety Report 12043865 (Version 1)
Quarter: 2016Q1

REPORT INFORMATION
  Report Type: Spontaneous
  Country: US (occurrence: US)
  Receive Date: 20160208
  Receipt Date: 20160208
  Transmission Date: 20160526
  Serious: No
  Sender: FDA-Public Use
  Company Number: US-BIOGEN-2016BI00175684

PATIENT
  Sex: Female

DRUGS (1)
  1. TECFIDERA [Suspect]
     Active Substance: DIMETHYL FUMARATE
     Indication: MULTIPLE SCLEROSIS
     Route: 065

REACTIONS (11)
  - Gait disturbance [Not Recovered/Not Resolved]
  - Burning sensation [Unknown]
  - Gastric disorder [Unknown]
  - Ear discomfort [Unknown]
  - Amnesia [Unknown]
  - Flushing [Unknown]
  - Foot fracture [Recovered/Resolved]
  - Tremor [Unknown]
  - Vomiting [Unknown]
  - Muscle spasms [Recovered/Resolved]
  - Stress [Unknown]
